FAERS Safety Report 5657930-2 (Version None)
Quarter: 2008Q1

REPORT INFORMATION
  Report Type: 
  Country: None (occurrence: None)
  Receive Date: 20080305
  Receipt Date: 20080218
  Transmission Date: 20080703
  Serious: Yes (Hospitalization)
  Sender: FDA-Public Use
  Company Number: DSA_31464_2008

PATIENT
  Sex: Female

DRUGS (4)
  1. LORAZEPAM [Suspect]
     Dosage: (40 MG 1X NOT THE PRESCRIBED AMOUNT. ORAL)
     Route: 048
     Dates: start: 20080216, end: 20080216
  2. APONAL (APONAL - DOXEPIN HYDROCHLORIDE) 5 MG (NOT SPECIFIED) [Suspect]
     Dosage: (50 MG 1X NOT THE PRESCRIBED AMOUNT. ORAL)
     Route: 048
     Dates: start: 20080216, end: 20080216
  3. INSIDON (INSIDON - OPIPRAMOL HYDROCHLORIDE) (NOT SPECIFIED) [Suspect]
     Dosage: (20 DF 1X NOT THE PRESCRIBED AMOUNT. ORAL)
     Route: 048
     Dates: start: 20080216, end: 20080216
  4. ZOLOFT [Suspect]
     Dosage: (500 MG 1X NOT THE PRESCRIBED AMOUNT. ORAL)
     Route: 048
     Dates: start: 20080216, end: 20080216

REACTIONS (7)
  - COMA [None]
  - HYPOTHERMIA [None]
  - MULTIPLE DRUG OVERDOSE INTENTIONAL [None]
  - SOMNOLENCE [None]
  - SUICIDE ATTEMPT [None]
  - SYSTOLIC HYPERTENSION [None]
  - TACHYCARDIA [None]
